FAERS Safety Report 5424165-8 (Version None)
Quarter: 2007Q3

REPORT INFORMATION
  Report Type: 
  Country: None (occurrence: None)
  Receive Date: 20070726
  Receipt Date: 20070516
  Transmission Date: 20080115
  Serious: Yes (Other)
  Sender: FDA-Public Use
  Company Number: 37202

PATIENT
  Age: 64 Year
  Sex: Female

DRUGS (11)
  1. OCTREOTIDE ACETATE [Suspect]
     Indication: PANCREATIC DISORDER
     Dosage: 0.5 ML (100 MCG) BEFORE MEALS
     Dates: start: 20070510, end: 20070513
  2. CUMADIN [Concomitant]
  3. HYDROXYUREA [Concomitant]
  4. NEURONTIN [Concomitant]
  5. ALTACE [Concomitant]
  6. ACTIBELLA [Concomitant]
  7. AMITRIPTYLINE HCL [Concomitant]
  8. AMBIEN [Concomitant]
  9. PROCARDIA [Concomitant]
  10. NEXIUM [Concomitant]
  11. OCTREOTIDE ACETATE [Concomitant]

REACTIONS (1)
  - DRUG INEFFECTIVE [None]
